FAERS Safety Report 4567239-6 (Version None)
Quarter: 2005Q1

REPORT INFORMATION
  Report Type: 
  Country: None (occurrence: None)
  Receive Date: 20050127
  Receipt Date: 20050121
  Transmission Date: 20050727
  Serious: Yes (Hospitalization, Other)
  Sender: FDA-Public Use
  Company Number: KII-2005-0014803

PATIENT
  Age: 56 Year
  Sex: Female

DRUGS (2)
  1. MORPHINE SULFATE [Suspect]
     Dosage: ORAL
     Route: 048
  2. CYCLOBENZAPRINE (CYCLOBENZAPRINE) [Suspect]
     Dosage: ORAL
     Route: 048

REACTIONS (4)
  - AGITATION [None]
  - CYANOSIS [None]
  - RESPIRATORY RATE DECREASED [None]
  - SEDATION [None]
